FAERS Safety Report 6490798-3 (Version None)
Quarter: 2009Q4

REPORT INFORMATION
  Report Type: 
  Country: None (occurrence: None)
  Receive Date: 20091211
  Receipt Date: 20091204
  Transmission Date: 20100525
  Serious: Yes (Hospitalization, Other)
  Sender: FDA-Public Use
  Company Number: US-JNJFOC-20091201792

PATIENT
  Age: 17 Year
  Sex: Male

DRUGS (5)
  1. HALOPERIDOL [Suspect]
     Indication: PSYCHOTIC DISORDER
     Route: 065
  2. LORAZEPAM [Suspect]
     Route: 048
  3. LORAZEPAM [Suspect]
     Route: 048
  4. LORAZEPAM [Suspect]
     Indication: PSYCHOTIC DISORDER
     Route: 048
  5. CHLORPROMAZINE [Suspect]
     Indication: PSYCHOTIC DISORDER
     Route: 065

REACTIONS (2)
  - CATATONIA [None]
  - CONVULSION [None]
